FAERS Safety Report 6148266-4 (Version None)
Quarter: 2009Q2

REPORT INFORMATION
  Report Type: 
  Country: None (occurrence: None)
  Receive Date: 20090406
  Receipt Date: 20080709
  Transmission Date: 20091009
  Serious: Yes (Other)
  Sender: FDA-Public Use
  Company Number: 50371

PATIENT
  Age: 57 Year
  Sex: Male
  Weight: 99.7913 kg

DRUGS (2)
  1. PHENTOLAMINE MESYLATE [Suspect]
     Indication: ERECTILE DYSFUNCTION
     Dosage: 0.5 - 1 CC/INTRACORPOREAL
     Dates: start: 20080705
  2. PAPAVERINE INJ [Suspect]
     Indication: ERECTILE DYSFUNCTION
     Dosage: 0.5-1 CC/INTRACORPOREAL

REACTIONS (1)
  - DRUG INEFFECTIVE [None]
